FAERS Safety Report 9606966 (Version 1)
Quarter: 2013Q4

REPORT INFORMATION
  Report Type: Spontaneous
  Country: US (occurrence: US)
  Receive Date: 20131008
  Receipt Date: 20131008
  Transmission Date: 20140711
  Serious: No
  Sender: FDA-Public Use
  Company Number: US-B.I. PHARMACEUTICALS,INC./RIDGEFIELD-2013-BI-30751BP

PATIENT
  Age: 50 Year
  Sex: Female
  Weight: 49 kg

DRUGS (8)
  1. SPIRIVA [Suspect]
     Indication: BRONCHITIS CHRONIC
     Dosage: 18 MCG
     Route: 055
     Dates: start: 2008, end: 20130927
  2. GABAPENTIN [Concomitant]
     Indication: NERVE COMPRESSION
     Dosage: 1050 MG
     Route: 048
     Dates: start: 2006
  3. ATORVASTATIN [Concomitant]
     Indication: BLOOD CHOLESTEROL INCREASED
     Dosage: 10 MG
     Route: 048
     Dates: start: 2007
  4. SOMA [Concomitant]
     Indication: HEADACHE
     Dosage: 350 MG
     Route: 048
     Dates: start: 201308
  5. RANITIDINE [Concomitant]
     Indication: GASTROOESOPHAGEAL REFLUX DISEASE
     Dosage: 300 MG
     Route: 048
     Dates: start: 201307
  6. DEXILANT [Concomitant]
     Indication: GASTROOESOPHAGEAL REFLUX DISEASE
     Dosage: 60 MG
     Route: 048
     Dates: start: 20130926
  7. CELEBREX [Concomitant]
     Indication: HEADACHE
     Dosage: 200 MG
     Route: 048
     Dates: start: 201309
  8. TYLENOL [Concomitant]
     Indication: HEADACHE
     Route: 048
     Dates: start: 201309

REACTIONS (2)
  - Dyspnoea [Not Recovered/Not Resolved]
  - Gastrooesophageal reflux disease [Not Recovered/Not Resolved]
